FAERS Safety Report 24301802 (Version 1)
Quarter: 2024Q3

REPORT INFORMATION
  Report Type: Spontaneous
  Country: CN (occurrence: CN)
  Receive Date: 20240910
  Receipt Date: 20240910
  Transmission Date: 20241017
  Serious: Yes (Death)
  Sender: STRIDES
  Company Number: CN-STRIDES ARCOLAB LIMITED-2024SP011376

PATIENT
  Age: 35 Year
  Sex: Male

DRUGS (12)
  1. METHOTREXATE [Suspect]
     Active Substance: METHOTREXATE
     Indication: Angiocentric lymphoma
     Dosage: UNK, CYCLICAL (SMILE REGIMEN, 4 CYCLES)
     Route: 065
  2. ETOPOSIDE [Suspect]
     Active Substance: ETOPOSIDE
     Indication: Angiocentric lymphoma
     Dosage: UNK, CYCLICAL (SMILE REGIMEN, 4 CYCLES)
     Route: 065
  3. DEXAMETHASONE [Suspect]
     Active Substance: DEXAMETHASONE
     Indication: Angiocentric lymphoma
     Dosage: UNK, CYCLICAL (SMILE REGIMEN, 4 CYCLES)
     Route: 065
  4. ASPARAGINASE [Suspect]
     Active Substance: ASPARAGINASE
     Indication: Angiocentric lymphoma
     Dosage: UNK, CYCLICAL (SMILE REGIMEN, 4 CYCLES)
     Route: 065
  5. TISLELIZUMAB [Suspect]
     Active Substance: TISLELIZUMAB
     Indication: Angiocentric lymphoma
     Dosage: UNK
     Route: 065
  6. TISLELIZUMAB [Suspect]
     Active Substance: TISLELIZUMAB
     Dosage: 200 MILLIGRAM, EVERY 3 WEEKS, (ON DAY 1)
     Route: 065
  7. TUCIDINOSTAT [Suspect]
     Active Substance: TUCIDINOSTAT
     Indication: Angiocentric lymphoma
     Dosage: UNK
     Route: 065
  8. BRENTUXIMAB VEDOTIN [Suspect]
     Active Substance: BRENTUXIMAB VEDOTIN
     Indication: Angiocentric lymphoma
     Dosage: UNK
     Route: 065
  9. TEMOZOLOMIDE [Suspect]
     Active Substance: TEMOZOLOMIDE
     Indication: Angiocentric lymphoma
     Dosage: UNK
     Route: 065
  10. PEMETREXED [Suspect]
     Active Substance: PEMETREXED
     Indication: Angiocentric lymphoma
     Dosage: UNK
     Route: 065
  11. SELINEXOR [Suspect]
     Active Substance: SELINEXOR
     Indication: Angiocentric lymphoma
     Dosage: 40 MILLIGRAM, ONCE A WEEK, (ON DAY 1 AND 8 OF 21 DAY CYCLE)
     Route: 065
  12. IFOSFAMIDE [Suspect]
     Active Substance: IFOSFAMIDE
     Indication: Angiocentric lymphoma
     Dosage: UNK, CYCLICAL (SMILE REGIMEN, 4 CYCLES)
     Route: 065

REACTIONS (2)
  - Drug ineffective [Fatal]
  - Malignant neoplasm progression [Fatal]
